FAERS Safety Report 4543859-X (Version None)
Quarter: 2005Q1

REPORT INFORMATION
  Report Type: 
  Country: None (occurrence: None)
  Receive Date: 20050103
  Receipt Date: 20041213
  Transmission Date: 20050727
  Serious: Yes (Hospitalization)
  Sender: FDA-Public Use
  Company Number: GXKR2004GB00557

PATIENT
  Age: 66 Year
  Sex: Female

DRUGS (7)
  1. RIFAMPICIN [Suspect]
     Indication: SEPSIS
     Dosage: 600 MG, INTRAVENOUS
     Route: 042
     Dates: start: 20041120, end: 20041120
  2. ORAMORPH SR [Concomitant]
  3. DIZEPAM (DIAZEPAM) [Concomitant]
  4. VENLAFAXINE HCL [Concomitant]
  5. PROPRANOLOL [Concomitant]
  6. IBANDRONIC ACID (BANDRONIC ACID) [Concomitant]
  7. METOCLOPRAMIDE [Concomitant]

REACTIONS (5)
  - ANAPHYLACTIC REACTION [None]
  - BLOOD PRESSURE INCREASED [None]
  - INFUSION RELATED REACTION [None]
  - NAUSEA [None]
  - VOMITING [None]
